FAERS Safety Report 4702223-0 (Version None)
Quarter: 2005Q2

REPORT INFORMATION
  Report Type: 
  Country: None (occurrence: None)
  Receive Date: 20050629
  Receipt Date: 20050625
  Transmission Date: 20051028
  Serious: Yes (Death, Hospitalization)
  Sender: FDA-Public Use
  Company Number: PHNU2005DE02388

PATIENT
  Age: 31 Year
  Sex: Male

DRUGS (2)
  1. LEPONEX / CLOZARIL (CLOZAPINE) [Suspect]
     Indication: SCHIZOPHRENIA, CATATONIC TYPE
     Dosage: UNK, UNK
     Route: 048
  2. TAVOR [Concomitant]

REACTIONS (5)
  - ACUTE ABDOMEN [None]
  - GASTROINTESTINAL NECROSIS [None]
  - GENERAL PHYSICAL HEALTH DETERIORATION [None]
  - INTUBATION [None]
  - LAPAROTOMY [None]
